FAERS Safety Report 7556719-7 (Version None)
Quarter: 2011Q2

REPORT INFORMATION
  Report Type: 
  Country: None (occurrence: None)
  Receive Date: 20110620
  Receipt Date: 20110616
  Transmission Date: 20111010
  Serious: Yes (Death)
  Sender: FDA-Public Use
  Company Number: US-AMGEN-USASP2011031037

PATIENT
  Sex: Male

DRUGS (2)
  1. NPLATE [Suspect]
     Indication: IDIOPATHIC THROMBOCYTOPENIC PURPURA
     Dosage: UNK
     Dates: start: 20110308
  2. CORTICOSTEROIDS [Concomitant]

REACTIONS (3)
  - IDIOPATHIC THROMBOCYTOPENIC PURPURA [None]
  - LYMPHOMA [None]
  - PANCYTOPENIA [None]
